FAERS Safety Report 14432311 (Version 1)
Quarter: 2018Q1

REPORT INFORMATION
  Report Type: Spontaneous
  Country: US (occurrence: US)
  Receive Date: 20180124
  Receipt Date: 20180124
  Transmission Date: 20180509
  Serious: Yes (Other)
  Sender: FDA-Public Use
  Company Number: US-PFIZER INC-2018030724

PATIENT
  Age: 42 Year
  Sex: Male
  Weight: 99 kg

DRUGS (1)
  1. ADVIL [Suspect]
     Active Substance: IBUPROFEN
     Indication: SCIATICA
     Dosage: 400 MG (2 CAPLETS) EVERY 3 OR 4 HOURS
     Route: 048
     Dates: start: 201801

REACTIONS (7)
  - Vomiting [Recovering/Resolving]
  - Throat irritation [Recovering/Resolving]
  - Exophthalmos [Recovering/Resolving]
  - Pharyngeal disorder [Recovering/Resolving]
  - Overdose [Unknown]
  - Product label issue [Recovering/Resolving]
  - Dyspnoea [Recovering/Resolving]

NARRATIVE: CASE EVENT DATE: 201801
